FAERS Safety Report 25719995 (Version 2)
Quarter: 2025Q3

REPORT INFORMATION
  Report Type: Spontaneous
  Country: US (occurrence: US)
  Receive Date: 20250825
  Receipt Date: 20250918
  Transmission Date: 20251020
  Serious: No
  Sender: CSL BEHRING
  Company Number: US-BEH-2025216559

PATIENT
  Age: 2 Year
  Sex: Female

DRUGS (8)
  1. RHOPHYLAC [Suspect]
     Active Substance: HUMAN RHO(D) IMMUNE GLOBULIN
     Indication: Immune thrombocytopenia
     Route: 065
  2. RHOPHYLAC [Suspect]
     Active Substance: HUMAN RHO(D) IMMUNE GLOBULIN
     Indication: Immune thrombocytopenia
     Route: 065
  3. RHOPHYLAC [Suspect]
     Active Substance: HUMAN RHO(D) IMMUNE GLOBULIN
     Route: 065
     Dates: start: 20250816, end: 20250816
  4. RHOPHYLAC [Suspect]
     Active Substance: HUMAN RHO(D) IMMUNE GLOBULIN
     Route: 065
     Dates: start: 20250816, end: 20250816
  5. RHOPHYLAC [Suspect]
     Active Substance: HUMAN RHO(D) IMMUNE GLOBULIN
     Route: 065
     Dates: start: 20250817, end: 20250817
  6. RHOPHYLAC [Suspect]
     Active Substance: HUMAN RHO(D) IMMUNE GLOBULIN
     Route: 065
     Dates: start: 20250817, end: 20250817
  7. RHOPHYLAC [Suspect]
     Active Substance: HUMAN RHO(D) IMMUNE GLOBULIN
     Route: 042
     Dates: start: 20241105, end: 20241106
  8. RHOPHYLAC [Suspect]
     Active Substance: HUMAN RHO(D) IMMUNE GLOBULIN
     Route: 042
     Dates: start: 20241105, end: 20241106

REACTIONS (2)
  - Rhesus antibodies positive [Recovering/Resolving]
  - Misleading laboratory test result [Recovering/Resolving]

NARRATIVE: CASE EVENT DATE: 20250818
